FAERS Safety Report 4536531-3 (Version None)
Quarter: 2004Q4

REPORT INFORMATION
  Report Type: 
  Country: None (occurrence: None)
  Receive Date: 20041222
  Receipt Date: 20041222
  Transmission Date: 20050328
  Serious: Yes (Hospitalization, Other)
  Sender: FDA-Public Use
  Company Number: None

PATIENT
  Sex: Female

DRUGS (8)
  1. FEEN-A-MINT TABLETS [Suspect]
     Indication: CONSTIPATION
     Dosage: 3 TIMES QD ORAL
     Route: 048
     Dates: start: 19850101, end: 19860101
  2. MINERAL OIL [Suspect]
     Indication: CONSTIPATION
     Dosage: 1 QD/4XS MO
     Dates: start: 19861201
  3. FLEET ENEMA ENEMA [Suspect]
     Indication: CONSTIPATION
     Dosage: TWICE WEEKLY
     Dates: start: 19850101, end: 19860101
  4. EPSOM SALT [Suspect]
     Indication: CONSTIPATION
     Dosage: 1 BOX QD
     Dates: start: 19830201, end: 19830301
  5. EX-LAX [Suspect]
     Indication: CONSTIPATION
     Dosage: 2 TWICE QD
     Dates: start: 19700101, end: 19790101
  6. DULCOLAX [Suspect]
     Indication: CONSTIPATION
     Dosage: ONCE DAILY
     Dates: start: 19800101, end: 19810101
  7. CASTOR OIL [Suspect]
     Indication: CONSTIPATION
     Dosage: 1 BOTTLE BID
     Dates: start: 19830401, end: 19840201
  8. MILK OF MAGNESIA [Suspect]
     Indication: CONSTIPATION
     Dosage: ONCE DAILY
     Dates: start: 19860801, end: 19861101

REACTIONS (11)
  - ABDOMINAL PAIN UPPER [None]
  - CONDITION AGGRAVATED [None]
  - CONSTIPATION [None]
  - CROHN'S DISEASE [None]
  - INTESTINAL OBSTRUCTION [None]
  - LOOSE STOOLS [None]
  - NAUSEA [None]
  - PAIN [None]
  - PROCEDURAL SITE REACTION [None]
  - TREATMENT NONCOMPLIANCE [None]
  - VOMITING [None]
